FAERS Safety Report 7332649-0 (Version None)
Quarter: 2011Q1

REPORT INFORMATION
  Report Type: 
  Country: None (occurrence: None)
  Receive Date: 20110304
  Receipt Date: 20110301
  Transmission Date: 20110831
  Serious: No
  Sender: FDA-Public Use
  Company Number: US-TEVA-269509USA

PATIENT
  Sex: Female
  Weight: 54.48 kg

DRUGS (1)
  1. PLAN B ONE-STEP [Suspect]
     Indication: POST COITAL CONTRACEPTION
     Route: 048
     Dates: start: 20110221, end: 20110221

REACTIONS (5)
  - MENSTRUATION IRREGULAR [None]
  - NAUSEA [None]
  - ABDOMINAL PAIN [None]
  - FATIGUE [None]
  - DIZZINESS [None]
